FAERS Safety Report 16577410 (Version 1)
Quarter: 2019Q3

REPORT INFORMATION
  Report Type: Report from Study
  Country: JP (occurrence: JP)
  Receive Date: 20190716
  Receipt Date: 20190716
  Transmission Date: 20191004
  Serious: Yes (Hospitalization)
  Sender: FDA-Public Use
  Company Number: JP-TEVA-2019-JP-002331J

PATIENT
  Age: 76 Year
  Sex: Male
  Weight: 70 kg

DRUGS (19)
  1. SUCRALFATE HYDRATE [Concomitant]
     Active Substance: SUCRALFATE
     Indication: GASTROOESOPHAGEAL REFLUX DISEASE
     Dosage: 3 GRAM DAILY;
     Route: 065
     Dates: start: 20180914, end: 20190309
  2. ALOSENN [Concomitant]
     Indication: CONSTIPATION
     Dosage: .5 GRAM DAILY;
     Route: 065
     Dates: start: 20180816, end: 20190309
  3. BELSOMRA [Concomitant]
     Active Substance: SUVOREXANT
     Indication: INSOMNIA
     Dosage: 15 MILLIGRAM DAILY;
     Route: 065
     Dates: start: 20170403, end: 20190309
  4. OLMESARTAN OD [Concomitant]
     Indication: HYPERTENSION
     Dosage: 10 MILLIGRAM DAILY;
     Route: 065
     Dates: start: 20171117, end: 20190309
  5. PITAVASTATIN CA [Concomitant]
     Active Substance: PITAVASTATIN CALCIUM
     Indication: CEREBROVASCULAR DISORDER
     Dosage: 80 MILLIGRAM DAILY;
     Route: 065
     Dates: start: 20181004, end: 20190309
  6. ONBREZ [Concomitant]
     Active Substance: INDACATEROL
     Indication: RESPIRATORY DISORDER
     Route: 055
     Dates: start: 20190206, end: 20190309
  7. LANSOPRAZOLE OD TABLET 30MG ^TAKEDA TEVA^ [Suspect]
     Active Substance: LANSOPRAZOLE
     Indication: GASTROOESOPHAGEAL REFLUX DISEASE
     Dosage: 30 MILLIGRAM DAILY;
     Route: 065
     Dates: start: 20180905, end: 20190309
  8. LANSOPRAZOLE OD TABLET 30MG ^TAKEDA TEVA^ [Suspect]
     Active Substance: LANSOPRAZOLE
     Dosage: 30 MILLIGRAM DAILY;
     Route: 065
     Dates: start: 20190419
  9. TAKEPRON [Suspect]
     Active Substance: LANSOPRAZOLE
     Route: 048
     Dates: start: 20160829, end: 20161024
  10. FAMOTIDINE D [Concomitant]
     Active Substance: FAMOTIDINE
     Indication: GASTROOESOPHAGEAL REFLUX DISEASE
     Dosage: 40 MILLIGRAM DAILY;
     Route: 065
     Dates: start: 20160620, end: 20190309
  11. TOPSYM [Concomitant]
     Indication: DRY SKIN PROPHYLAXIS
     Route: 065
     Dates: start: 20180628
  12. LANSOPRAZOLE OD TABLET 30MG ^TAKEDA TEVA^ [Suspect]
     Active Substance: LANSOPRAZOLE
     Dosage: 15 MILLIGRAM DAILY;
     Route: 065
     Dates: start: 20190313, end: 20190418
  13. INCREMIN [Concomitant]
     Active Substance: FERRIC PYROPHOSPHATE
     Indication: IRON DEFICIENCY ANAEMIA
     Route: 065
     Dates: start: 20180402, end: 20190309
  14. TAKEPRON [Suspect]
     Active Substance: LANSOPRAZOLE
     Indication: GASTROOESOPHAGEAL REFLUX DISEASE
     Dosage: 30 MILLIGRAM DAILY;
     Route: 065
     Dates: start: 20160721, end: 20160828
  15. ALLOID G [Concomitant]
     Active Substance: SODIUM ALGINATE
     Indication: GASTROOESOPHAGEAL REFLUX DISEASE
     Route: 065
     Dates: start: 20180402, end: 20190309
  16. CLOPIDOGREL SULFATE [Concomitant]
     Active Substance: CLOPIDOGREL BISULFATE
     Indication: CEREBROVASCULAR DISORDER
     Dosage: 50 MILLIGRAM DAILY;
     Route: 065
     Dates: start: 20171117, end: 20190206
  17. TAKEPRON [Suspect]
     Active Substance: LANSOPRAZOLE
     Dosage: 30 MILLIGRAM DAILY;
     Route: 048
     Dates: start: 20161025, end: 20180904
  18. NIFEDIPINE CR [Concomitant]
     Active Substance: NIFEDIPINE
     Indication: HYPERTENSION
     Dosage: 80 MILLIGRAM DAILY;
     Route: 065
     Dates: start: 20180913, end: 20190309
  19. BAYASPIRIN [Concomitant]
     Active Substance: ASPIRIN
     Indication: CEREBROVASCULAR DISORDER
     Dosage: 100 MILLIGRAM DAILY;
     Route: 048
     Dates: start: 20190222, end: 20190309

REACTIONS (7)
  - Paralysis [Unknown]
  - Herpes zoster [Recovered/Resolved]
  - Thrombotic cerebral infarction [Recovered/Resolved with Sequelae]
  - Prostate cancer [Recovered/Resolved]
  - Dysarthria [Unknown]
  - Dysphagia [Unknown]
  - Facial paralysis [Unknown]

NARRATIVE: CASE EVENT DATE: 20181217
